FAERS Safety Report 7354517-0 (Version None)
Quarter: 2011Q1

REPORT INFORMATION
  Report Type: 
  Country: None (occurrence: None)
  Receive Date: 20110316
  Receipt Date: 20100914
  Transmission Date: 20110831
  Serious: Yes (Other)
  Sender: FDA-Public Use
  Company Number: US-BAYER-201025775NA

PATIENT
  Sex: Female
  Weight: 45.351 kg

DRUGS (6)
  1. PROTONIX [Concomitant]
     Indication: ANXIETY
     Dosage: UNK
     Dates: start: 20080401
  2. PROZAC [Concomitant]
     Indication: ANXIETY
     Dosage: UNK
     Dates: start: 20070101
  3. PROZAC [Concomitant]
     Dosage: UNK
     Dates: start: 20080401
  4. LORTAB [Concomitant]
     Dosage: UNK
     Dates: start: 20080101
  5. YAZ [Suspect]
     Dosage: UNK
     Route: 048
     Dates: start: 20070101, end: 20080101
  6. PHENERGAN [Concomitant]
     Dosage: UNK
     Dates: start: 20080401

REACTIONS (3)
  - PAIN [None]
  - CHOLECYSTITIS CHRONIC [None]
  - CHOLECYSTECTOMY [None]
